FAERS Safety Report 5503386-X (Version None)
Quarter: 2007Q4

REPORT INFORMATION
  Report Type: 
  Country: None (occurrence: None)
  Receive Date: 20071031
  Receipt Date: 20071019
  Transmission Date: 20080405
  Serious: Yes (Other)
  Sender: FDA-Public Use
  Company Number: US-PFIZER INC-2007071026

PATIENT
  Sex: Female
  Weight: 133.4 kg

DRUGS (9)
  1. LYRICA [Suspect]
     Indication: FIBROMYALGIA
  2. ACTOS [Suspect]
     Indication: DIABETES MELLITUS
  3. ASPIRIN [Concomitant]
  4. AMARYL [Concomitant]
  5. CLARINEX [Concomitant]
  6. ZOLOFT [Concomitant]
     Dosage: DAILY DOSE:150MG-FREQ:DAILY
  7. LOZOL [Concomitant]
  8. ZESTRIL [Concomitant]
  9. LIPITOR [Concomitant]

REACTIONS (13)
  - ACTIVITIES OF DAILY LIVING IMPAIRED [None]
  - ARTHRALGIA [None]
  - BLOOD BICARBONATE INCREASED [None]
  - BLOOD UREA INCREASED [None]
  - DEPRESSED LEVEL OF CONSCIOUSNESS [None]
  - DIZZINESS [None]
  - GAIT DISTURBANCE [None]
  - GLYCOSYLATED HAEMOGLOBIN INCREASED [None]
  - HIGH DENSITY LIPOPROTEIN ABNORMAL [None]
  - MYALGIA [None]
  - OEDEMA [None]
  - PAIN [None]
  - SOMNOLENCE [None]
